FAERS Safety Report 10390494 (Version 3)
Quarter: 2014Q4

REPORT INFORMATION
  Report Type: Spontaneous
  Country: US (occurrence: None)
  Receive Date: 20140814
  Receipt Date: 20141211
  Transmission Date: 20150528
  Serious: Yes (Hospitalization, Other)
  Sender: FDA-Public Use
  Company Number: 2014-US-009386

PATIENT
  Age: 55 Year
  Sex: Female
  Weight: 58.5 kg

DRUGS (11)
  1. XYREM [Suspect]
     Active Substance: SODIUM OXYBATE
     Indication: INSOMNIA
     Route: 048
     Dates: start: 201303, end: 201304
  2. LEVOTHYROXINE SODIUM. [Concomitant]
     Active Substance: LEVOTHYROXINE SODIUM
  3. OXYGEN. [Concomitant]
     Active Substance: OXYGEN
  4. ONDANSETRON. [Concomitant]
     Active Substance: ONDANSETRON
  5. PROZAC [Concomitant]
     Active Substance: FLUOXETINE HYDROCHLORIDE
  6. PRIMIDONE. [Suspect]
     Active Substance: PRIMIDONE
     Indication: INSOMNIA
     Dates: start: 20140711, end: 201409
  7. SEROQUEL [Concomitant]
     Active Substance: QUETIAPINE FUMARATE
  8. PRIMIDONE. [Suspect]
     Active Substance: PRIMIDONE
     Indication: TREMOR
     Dates: start: 20140711, end: 201409
  9. MAXALT (RIZATRIPTAN BENZOATE) [Concomitant]
     Active Substance: RIZATRIPTAN BENZOATE
  10. MIRAPEX [Concomitant]
     Active Substance: PRAMIPEXOLE DIHYDROCHLORIDE
  11. VITAMIN D (ERGOCALCIFEROL) [Concomitant]
     Active Substance: ERGOCALCIFEROL

REACTIONS (26)
  - Insomnia [None]
  - Cystitis [None]
  - Condition aggravated [None]
  - Asphyxia [None]
  - Intestinal obstruction [None]
  - Suicidal ideation [None]
  - Nausea [None]
  - Bladder cyst [None]
  - Incoherent [None]
  - Somnolence [None]
  - Drug interaction [None]
  - Urinary bladder haemorrhage [None]
  - Urinary bladder polyp [None]
  - Off label use [None]
  - Abnormal behaviour [None]
  - Delusion [None]
  - Disorientation [None]
  - Paranoia [None]
  - Confusional state [None]
  - Tremor [None]
  - Urinary tract infection [None]
  - Delirium [None]
  - Cyst rupture [None]
  - Obsessive-compulsive disorder [None]
  - Bipolar disorder [None]
  - Memory impairment [None]

NARRATIVE: CASE EVENT DATE: 201405
